FAERS Safety Report 8763120 (Version 1)
Quarter: 2012Q4

REPORT INFORMATION
  Report Type: 
  Country: US (occurrence: US)
  Receive Date: 20120831
  Receipt Date: 20120831
  Transmission Date: 20130627
  Serious: Yes (Hospitalization)
  Sender: FDA-Public Use
  Company Number: 2012SP002392

PATIENT
  Sex: Female

DRUGS (4)
  1. LATUDA [Suspect]
     Indication: BIPOLAR DISORDER
     Route: 048
  2. LATUDA [Suspect]
     Indication: BIPOLAR DISORDER
     Route: 048
  3. LATUDA [Suspect]
     Indication: BIPOLAR DISORDER
     Route: 048
  4. LATUDA [Suspect]
     Indication: BIPOLAR DISORDER
     Route: 048

REACTIONS (5)
  - Psychotic disorder [Recovered/Resolved]
  - Drug ineffective [None]
  - Bipolar disorder [Recovering/Resolving]
  - Galactorrhoea [Recovered/Resolved]
  - Weight increased [Recovering/Resolving]
